FAERS Safety Report 25046984 (Version 1)
Quarter: 2025Q1

REPORT INFORMATION
  Report Type: Spontaneous
  Country: US (occurrence: US)
  Receive Date: 20250306
  Receipt Date: 20250306
  Transmission Date: 20250409
  Serious: Yes (Other)
  Sender: PFIZER
  Company Number: US-PFIZER INC-202500049362

PATIENT
  Age: 74 Year
  Sex: Female

DRUGS (1)
  1. IBRANCE [Suspect]
     Active Substance: PALBOCICLIB

REACTIONS (6)
  - Arterial occlusive disease [Unknown]
  - Osteoporosis [Unknown]
  - Pain [Unknown]
  - Gait disturbance [Unknown]
  - Panic attack [Unknown]
  - Malaise [Unknown]
